FAERS Safety Report 23833328 (Version 1)
Quarter: 2024Q2

REPORT INFORMATION
  Report Type: Spontaneous
  Country: US (occurrence: US)
  Receive Date: 20240508
  Receipt Date: 20240508
  Transmission Date: 20240716
  Serious: No
  Sender: FDA-Public Use
  Company Number: US-BAUSCHBL-2024BNL026350

PATIENT
  Sex: Female

DRUGS (2)
  1. XIIDRA [Suspect]
     Active Substance: LIFITEGRAST
     Indication: Dry eye
     Dosage: TWICE A DAY
     Route: 047
     Dates: start: 2023
  2. XIIDRA [Suspect]
     Active Substance: LIFITEGRAST
     Dosage: SOMETIMES ONCE A DAY
     Route: 047
     Dates: end: 20240423

REACTIONS (6)
  - Eye discharge [Recovering/Resolving]
  - Facial pain [Unknown]
  - Sinus disorder [Unknown]
  - Pain [Unknown]
  - Infection [Unknown]
  - Inappropriate schedule of product administration [Unknown]

NARRATIVE: CASE EVENT DATE: 20240101
